FAERS Safety Report 5961680-2 (Version None)
Quarter: 2008Q4

REPORT INFORMATION
  Report Type: 
  Country: None (occurrence: None)
  Receive Date: 20081119
  Receipt Date: 20081110
  Transmission Date: 20090506
  Serious: Yes (Hospitalization)
  Sender: FDA-Public Use
  Company Number: 036552

PATIENT
  Age: 78 Year
  Sex: Female
  Weight: 86.8 kg

DRUGS (3)
  1. WARFARIN SODIUM [Suspect]
     Dosage: 2 - 10 MILLIGRAM, UNK
  2. EXEMESTANE [Suspect]
     Indication: BREAST CANCER
     Dosage: 25 MG ( 25MG, 1 IN 1 D), ORAL
     Route: 048
     Dates: start: 20080206
  3. ENOXAPARIN SODIUM [Suspect]
     Dosage: 40-80 MG BID, UNK

REACTIONS (2)
  - ATRIAL FIBRILLATION [None]
  - HAEMATOMA [None]
